FAERS Safety Report 24529397 (Version 2)
Quarter: 2025Q4

REPORT INFORMATION
  Report Type: Spontaneous
  Country: US (occurrence: US)
  Receive Date: 20241021
  Receipt Date: 20251022
  Transmission Date: 20260117
  Serious: No
  Sender: ROCHE
  Company Number: US-ROCHE-10000110229

PATIENT
  Sex: Male

DRUGS (2)
  1. HEMLIBRA [Suspect]
     Active Substance: EMICIZUMAB-KXWH
     Indication: Factor VIII deficiency
     Dosage: STRENGTH: 300MG/2ML
     Route: 058
     Dates: start: 202407
  2. ALTUVIIIO [Concomitant]
     Active Substance: EFANESOCTOCOG ALFA

REACTIONS (2)
  - Haemorrhage [Unknown]
  - Epistaxis [Unknown]
